FAERS Safety Report 6889870-5 (Version None)
Quarter: 2010Q3

REPORT INFORMATION
  Report Type: 
  Country: None (occurrence: None)
  Receive Date: 20100730
  Receipt Date: 20080527
  Transmission Date: 20110219
  Serious: No
  Sender: FDA-Public Use
  Company Number: US-PFIZER INC-2008045771

PATIENT
  Age: 55 Year
  Sex: Male

DRUGS (2)
  1. LIPITOR [Suspect]
     Dates: start: 20080101, end: 20080101
  2. ACETYLSALICYLIC ACID SRT [Concomitant]
     Dates: end: 20080101

REACTIONS (1)
  - HEPATIC ENZYME INCREASED [None]
